FAERS Safety Report 7814163-9 (Version None)
Quarter: 2011Q4

REPORT INFORMATION
  Report Type: 
  Country: None (occurrence: None)
  Receive Date: 20111012
  Receipt Date: 20110927
  Transmission Date: 20120403
  Serious: Yes (Hospitalization, Other)
  Sender: FDA-Public Use
  Company Number: TPA2011A04894

PATIENT
  Age: 69 Year
  Sex: Male
  Weight: 120.2032 kg

DRUGS (7)
  1. METOPROLOL TARTRATE [Concomitant]
  2. LEVOTHYROXINE SODIUM [Concomitant]
  3. LIPITOR [Concomitant]
  4. FLOMAX [Concomitant]
  5. ALPHAGAN (BRIMONIDINE) [Concomitant]
  6. ACULAR [Concomitant]
  7. ACTOS [Suspect]
     Indication: TYPE 2 DIABETES MELLITUS
     Dosage: 15 MG, 1 IN 1 D
     Dates: start: 20030403, end: 20110701

REACTIONS (3)
  - PROSTATE CANCER [None]
  - PROSTATIC SPECIFIC ANTIGEN INCREASED [None]
  - BLADDER CANCER [None]
